FAERS Safety Report 9271115 (Version 1)
Quarter: 2013Q2

REPORT INFORMATION
  Report Type: Spontaneous
  Country: JP (occurrence: JP)
  Receive Date: 20130506
  Receipt Date: 20130506
  Transmission Date: 20140414
  Serious: Yes (Other)
  Sender: FDA-Public Use
  Company Number: PHHY2013JP041593

PATIENT
  Age: 54 Year
  Sex: Female

DRUGS (6)
  1. LETROZOLE [Suspect]
     Indication: BREAST CANCER METASTATIC
  2. EXEMESTANE [Concomitant]
     Dosage: UNK UKN, UNK
  3. BISPHOSPHONATES [Concomitant]
     Dosage: UNK UKN, UNK
  4. CAPECITABINE [Concomitant]
     Indication: HYDRONEPHROSIS
     Dosage: 2400 MG PER BODY
  5. CAPECITABINE [Concomitant]
     Dosage: 1800 MG PER BODY
  6. CAPECITABINE [Concomitant]
     Dosage: 1500 MG PER BODY

REACTIONS (8)
  - Hydronephrosis [Recovered/Resolved]
  - Hydroureter [Unknown]
  - Metastases to peritoneum [Unknown]
  - Metastases to lung [Unknown]
  - Metastases to bone [Unknown]
  - Back pain [Unknown]
  - Nail disorder [Unknown]
  - Hypoaesthesia [Unknown]
